FAERS Safety Report 5644680-1 (Version None)
Quarter: 2008Q1

REPORT INFORMATION
  Report Type: 
  Country: None (occurrence: None)
  Receive Date: 20080229
  Receipt Date: 20070601
  Transmission Date: 20080703
  Serious: No
  Sender: FDA-Public Use
  Company Number: A0652429A

PATIENT
  Age: 54 Year
  Sex: Female
  Weight: 87.7 kg

DRUGS (6)
  1. VALTREX [Suspect]
     Indication: GENITAL HERPES
     Dosage: 1G TWICE PER DAY
     Route: 048
     Dates: start: 20070514
  2. GLUCOPHAGE [Concomitant]
  3. PLAQUENIL [Concomitant]
  4. PREDNISONE TAB [Concomitant]
  5. LANTUS [Concomitant]
  6. IBUPROFEN [Concomitant]

REACTIONS (4)
  - ASTHENIA [None]
  - DIZZINESS [None]
  - DRUG INEFFECTIVE [None]
  - NAUSEA [None]
